FAERS Safety Report 8537090-0 (Version None)
Quarter: 2012Q3

REPORT INFORMATION
  Report Type: 
  Country: None (occurrence: None)
  Receive Date: 20120725
  Receipt Date: 20120719
  Transmission Date: 20120928
  Serious: Yes (Other)
  Sender: FDA-Public Use
  Company Number: US-PFIZER INC-2009155639

PATIENT
  Sex: Male
  Weight: 48.1 kg

DRUGS (10)
  1. GENOTROPIN [Suspect]
     Indication: BODY HEIGHT BELOW NORMAL
     Dosage: 2.2 MG, UNK
     Route: 058
     Dates: end: 20090101
  2. GENOTROPIN [Suspect]
     Dosage: 3 MG, 1X/DAY
  3. METADATE CD [Concomitant]
     Indication: ATTENTION DEFICIT/HYPERACTIVITY DISORDER
     Dosage: 40 MG, 1X/DAY
  4. FANAPT [Concomitant]
     Indication: ATTENTION DEFICIT/HYPERACTIVITY DISORDER
     Dosage: 8 MG, 2X/DAY
  5. GENOTROPIN [Suspect]
     Indication: HEAD CIRCUMFERENCE ABNORMAL
     Dosage: 1.4 MG, UNK
     Dates: start: 20090101
  6. SERTRALINE [Concomitant]
     Dosage: 25 MG, 2X/DAY
     Route: 048
  7. TENEX [Concomitant]
     Dosage: UNK
  8. TRAZODONE [Concomitant]
     Indication: SLEEP DISORDER
     Dosage: 50 MG, 1X/DAY
  9. METADATE CD [Concomitant]
     Indication: AUTISM
  10. RISPERIDONE [Concomitant]
     Dosage: UNK

REACTIONS (6)
  - EYE PAIN [None]
  - PRODUCT QUALITY ISSUE [None]
  - PAPILLOEDEMA [None]
  - VISUAL IMPAIRMENT [None]
  - HEADACHE [None]
  - POOR QUALITY DRUG ADMINISTERED [None]
